FAERS Safety Report 10090535 (Version 1)
Quarter: 2014Q2

REPORT INFORMATION
  Report Type: Spontaneous
  Country: US (occurrence: US)
  Receive Date: 20140421
  Receipt Date: 20140421
  Transmission Date: 20141212
  Serious: No
  Sender: FDA-Public Use
  Company Number: US-PFIZER INC-2014109615

PATIENT
  Age: 55 Year
  Sex: Female

DRUGS (1)
  1. DUAVEE [Suspect]
     Indication: VAGINAL HAEMORRHAGE
     Dosage: UNK

REACTIONS (2)
  - Hot flush [Unknown]
  - Blood oestrogen decreased [Unknown]
